FAERS Safety Report 6135514-X (Version None)
Quarter: 2009Q1

REPORT INFORMATION
  Report Type: 
  Country: None (occurrence: None)
  Receive Date: 20090327
  Receipt Date: 20090323
  Transmission Date: 20090719
  Serious: Yes (Hospitalization)
  Sender: FDA-Public Use
  Company Number: B0565890A

PATIENT
  Age: 20 Day
  Sex: Male

DRUGS (2)
  1. BACTROBAN [Suspect]
     Indication: DRUG USE FOR UNKNOWN INDICATION
     Route: 045
     Dates: start: 20090311, end: 20090314
  2. TRICLORYL [Concomitant]
     Route: 048
     Dates: start: 20090311

REACTIONS (1)
  - BLISTER [None]
